FAERS Safety Report 20109115 (Version 1)
Quarter: 2021Q4

REPORT INFORMATION
  Report Type: Spontaneous
  Country: CN (occurrence: CN)
  Receive Date: 20211124
  Receipt Date: 20211124
  Transmission Date: 20220304
  Serious: Yes (Other)
  Sender: FDA-Public Use
  Company Number: CN-BAXTER-2021BAX036831

PATIENT
  Age: 53 Year
  Sex: Female
  Weight: 71 kg

DRUGS (10)
  1. CYCLOPHOSPHAMIDE [Suspect]
     Active Substance: CYCLOPHOSPHAMIDE
     Indication: Breast cancer
     Dosage: CYCLOPHOSPHAMIDE 1 G + SODIUM CHLORIDE 40 ML
     Route: 042
     Dates: start: 20210823, end: 20210823
  2. CYCLOPHOSPHAMIDE [Suspect]
     Active Substance: CYCLOPHOSPHAMIDE
     Dosage: DOSE RE-INTRODUCED
     Route: 042
  3. SODIUM CHLORIDE [Suspect]
     Active Substance: SODIUM CHLORIDE
     Indication: Medication dilution
     Dosage: 0.9% SODIUM CHLORIDE INJECTION 40ML + ZOLEDRONIC ACID FOR INJECTION 1G
     Route: 040
     Dates: start: 20210823
  4. EPIRUBICIN HYDROCHLORIDE [Suspect]
     Active Substance: EPIRUBICIN HYDROCHLORIDE
     Indication: Breast cancer
     Dosage: 0.9% SODIUM CHLORIDE INJECTION 100ML + EPIRUBICIN HYDROCHLORIDE FOR INJECTION 150 MG
     Route: 041
     Dates: start: 20210823, end: 20210823
  5. EPIRUBICIN HYDROCHLORIDE [Suspect]
     Active Substance: EPIRUBICIN HYDROCHLORIDE
     Dosage: DOSE RE-INTRODUCED
     Route: 041
  6. SODIUM CHLORIDE [Suspect]
     Active Substance: SODIUM CHLORIDE
     Indication: Medication dilution
     Dosage: CYCLOPHOSPHAMIDE 1 G + SODIUM CHLORIDE 40 ML
     Route: 042
     Dates: start: 20210823, end: 20210823
  7. SODIUM CHLORIDE [Suspect]
     Active Substance: SODIUM CHLORIDE
     Dosage: DOSE RE-INTRODUCED
     Route: 042
  8. SODIUM CHLORIDE [Suspect]
     Active Substance: SODIUM CHLORIDE
     Indication: Medication dilution
     Dosage: 0.9% SODIUM CHLORIDE INJECTION 100ML + EPIRUBICIN HYDROCHLORIDE FOR INJECTION 150 MG
     Route: 041
     Dates: start: 20210823, end: 20210823
  9. SODIUM CHLORIDE [Suspect]
     Active Substance: SODIUM CHLORIDE
     Dosage: DOSE RE-INTRODUCED
     Route: 041
  10. ZOLEDRONIC ACID [Suspect]
     Active Substance: ZOLEDRONIC ACID
     Indication: Breast cancer
     Dosage: 0.9% SODIUM CHLORIDE INJECTION 40ML + ZOLEDRONIC ACID FOR INJECTION 1G
     Route: 040
     Dates: start: 20210823

REACTIONS (1)
  - Neutropenia [Recovering/Resolving]

NARRATIVE: CASE EVENT DATE: 20210912
